FAERS Safety Report 8192769-8 (Version None)
Quarter: 2012Q1

REPORT INFORMATION
  Report Type: 
  Country: None (occurrence: None)
  Receive Date: 20120308
  Receipt Date: 20120306
  Transmission Date: 20120608
  Serious: No
  Sender: FDA-Public Use
  Company Number: US-PFIZER INC-2007066402

PATIENT
  Sex: Female
  Weight: 75 kg

DRUGS (8)
  1. NITROGLYCERIN [Concomitant]
     Dosage: 0.2 MG, UNK
     Route: 062
  2. LISINOPRIL [Concomitant]
     Dosage: 2.5 MG, 1X/DAY
  3. TRICOR [Concomitant]
     Dosage: UNK
  4. CRESTOR [Concomitant]
     Dosage: UNK
  5. TOPROL-XL [Concomitant]
     Dosage: 100 MG, 1X/DAY
  6. CHANTIX [Suspect]
     Indication: SMOKING CESSATION THERAPY
     Dosage: 0.5 MG, 1X/DAY
     Dates: start: 20070806
  7. ASPIRIN [Concomitant]
     Dosage: 325 MG, 1X/DAY
  8. PAXIL [Concomitant]
     Dosage: 20 MG, 1X/DAY

REACTIONS (1)
  - SOMNAMBULISM [None]
